FAERS Safety Report 8891133 (Version 2)
Quarter: 2012Q4

REPORT INFORMATION
  Report Type: 
  Country: US (occurrence: US)
  Receive Date: 20121107
  Receipt Date: 20121211
  Transmission Date: 20130627
  Serious: No
  Sender: FDA-Public Use
  Company Number: US-B.I. PHARMACEUTICALS,INC./RIDGEFIELD-2012-BP-27193BP

PATIENT
  Age: 80 Year
  Sex: Male
  Weight: 79 kg

DRUGS (4)
  1. PRADAXA [Suspect]
     Indication: ATRIAL FIBRILLATION
     Dosage: 300 mg
     Route: 048
     Dates: start: 20121024, end: 20121101
  2. ANTI-HYPERTENSIVE [Concomitant]
     Indication: HYPERTENSION
     Route: 048
  3. ALBUTEROL [Concomitant]
     Indication: CHRONIC OBSTRUCTIVE PULMONARY DISEASE
     Route: 055
  4. PROTON PUMP INHIBITIOR [Concomitant]
     Indication: GASTROOESOPHAGEAL REFLUX DISEASE

REACTIONS (4)
  - Headache [Recovered/Resolved]
  - Gastrooesophageal reflux disease [Recovered/Resolved]
  - Nausea [Recovered/Resolved]
  - Expired drug administered [Recovered/Resolved]
